FAERS Safety Report 9091524 (Version 1)
Quarter: 2013Q1

REPORT INFORMATION
  Report Type: Spontaneous
  Country: US (occurrence: US)
  Receive Date: 20130202
  Receipt Date: 20130202
  Transmission Date: 20140127
  Serious: Yes (Other)
  Sender: FDA-Public Use
  Company Number: US-ACCORD-016151

PATIENT
  Age: 44 Year
  Sex: Male

DRUGS (1)
  1. IRINOTECAN HYDROCHLORIDE [Suspect]
     Indication: COLON CANCER METASTATIC
     Dosage: 20MG OF IRINOTECAN LOADED BEADS (SUSPENDED IN 300- 500 MICROM LC BEADS) IN EACH OF THE THREE CHEMOEM
     Route: 013

REACTIONS (1)
  - Vascular pseudoaneurysm [Recovered/Resolved]
